FAERS Safety Report 9639502 (Version 5)
Quarter: 2015Q1

REPORT INFORMATION
  Report Type: Spontaneous
  Country: US (occurrence: US)
  Receive Date: 20131023
  Receipt Date: 20150327
  Transmission Date: 20150721
  Serious: Yes (Other)
  Sender: FDA-Public Use
  Company Number: US-AMGEN-USASP2013074354

PATIENT
  Age: 51 Year
  Sex: Female
  Weight: 56.5 kg

DRUGS (30)
  1. XANAX [Concomitant]
     Active Substance: ALPRAZOLAM
     Dosage: 0.125 MG, AS NECESSARY
     Route: 048
  2. REGLAN                             /00041902/ [Concomitant]
     Dosage: 10 MG, AS NECESSARY
     Route: 048
  3. LOPRESSOR [Concomitant]
     Active Substance: METOPROLOL TARTRATE
     Dosage: TAKE 0.5 TABLETS (12.5 MG TOTAL), QD
     Route: 048
  4. VITAMIN D3 [Concomitant]
     Active Substance: CHOLECALCIFEROL
     Dosage: 400 UNIT, QD EVERY MORNING
     Route: 048
  5. PROGRAF [Concomitant]
     Active Substance: TACROLIMUS\TACROLIMUS ANHYDROUS
     Dosage: 4 MG, BID
     Route: 048
  6. AMOXIL                             /00249601/ [Concomitant]
     Active Substance: AMOXICILLIN
     Dosage: 875 MG, UNK
  7. DOLOPHINE [Concomitant]
     Active Substance: METHADONE HYDROCHLORIDE
     Dosage: 20-30 MG, BID
     Route: 048
  8. FLEXERIL [Concomitant]
     Active Substance: CYCLOBENZAPRINE HYDROCHLORIDE
     Dosage: 10 MG, AS NECESSARY
     Route: 048
  9. NORCO [Concomitant]
     Active Substance: ACETAMINOPHEN\HYDROCODONE BITARTRATE
     Dosage: 5-325 MG,  EVERY 8 HOURS AS NEEDED
     Route: 048
  10. LOPRESSOR [Concomitant]
     Active Substance: METOPROLOL TARTRATE
     Dosage: TAKE 0.5 TABLETS (12.5 MG TOTAL), BID
  11. PROTONIX [Concomitant]
     Active Substance: PANTOPRAZOLE SODIUM
     Dosage: 40 MG, QD
     Route: 048
  12. TOBREX [Concomitant]
     Active Substance: TOBRAMYCIN
     Dosage: UNK
     Route: 047
  13. PROCRIT [Suspect]
     Active Substance: ERYTHROPOIETIN
     Indication: NEPHROGENIC ANAEMIA
  14. TACROLIMUS. [Concomitant]
     Active Substance: TACROLIMUS
     Dosage: 4 CAPSULES (4MG TOTAL) 2 TIMES A DAY
     Route: 048
  15. ESTRING [Concomitant]
     Active Substance: ESTRADIOL
     Dosage: 2 MG, Q3MO
     Route: 067
  16. MAG-OX [Concomitant]
     Active Substance: MAGNESIUM OXIDE
     Dosage: 400 MG, QD
     Route: 048
  17. PROCRIT [Suspect]
     Active Substance: ERYTHROPOIETIN
     Indication: CHRONIC KIDNEY DISEASE
     Dosage: 40000 UNIT, QWK
     Route: 058
     Dates: start: 200911
  18. MYCOPHENOLATE MOFETIL ACCORD [Concomitant]
     Active Substance: MYCOPHENOLATE MOFETIL
     Dosage: UNK
  19. TACROLIMUS. [Concomitant]
     Active Substance: TACROLIMUS
     Dosage: 3 MG, BID
  20. PERIDEX [Concomitant]
     Active Substance: CHLORHEXIDINE GLUCONATE
     Dosage: 0.12 %, UNK
  21. THERAGRAN                          /07504101/ [Concomitant]
     Dosage: TAKE 1 TABLET , QD
     Route: 048
  22. CELLCEPT [Concomitant]
     Active Substance: MYCOPHENOLATE MOFETIL\MYCOPHENOLATE MOFETIL HYDROCHLORIDE
     Dosage: 1 TABLET (500MG), BID
     Route: 048
  23. CLINDESSE [Concomitant]
     Active Substance: CLINDAMYCIN PHOSPHATE
     Dosage: UNK
  24. ESTRACE [Concomitant]
     Active Substance: ESTRADIOL
     Dosage: 2 G, QD
     Route: 067
  25. IRON                               /00023505/ [Concomitant]
     Dosage: 65 MG, UNK
     Route: 048
  26. LIDODERM [Concomitant]
     Active Substance: LIDOCAINE
     Dosage: 5 %, (700MG) PLACE 1 PATCH ONTO THE SKIN 1(ONE) TIME A DAY AS NEEDED
     Route: 062
  27. ZOFRAN                             /00955301/ [Concomitant]
     Active Substance: ONDANSETRON HYDROCHLORIDE
     Dosage: 4 MG, UNK
  28. ARANESP [Suspect]
     Active Substance: DARBEPOETIN ALFA
     Indication: PRODUCT USED FOR UNKNOWN INDICATION
     Dosage: 25 MG, UNK
     Route: 065
     Dates: start: 20090805, end: 20091022
  29. PHENERGAN [Concomitant]
     Active Substance: PROMETHAZINE HYDROCHLORIDE
     Dosage: 25 MG, AS NECESSARY
     Route: 048
  30. SODIUM BICARBONATE. [Concomitant]
     Active Substance: SODIUM BICARBONATE
     Dosage: UNK UNK, BID
     Route: 048

REACTIONS (14)
  - Haemoglobin decreased [Unknown]
  - Procedural nausea [Unknown]
  - Claustrophobia [Unknown]
  - Bone marrow failure [Unknown]
  - Cytopenia [Unknown]
  - Urinary tract infection [Unknown]
  - Headache [Unknown]
  - Therapeutic response decreased [Unknown]
  - Back pain [Unknown]
  - Fatigue [Unknown]
  - Diabetic blindness [Unknown]
  - Procedural vomiting [Unknown]
  - Feeling jittery [Unknown]
  - Pain [Unknown]

NARRATIVE: CASE EVENT DATE: 20131011
